FAERS Safety Report 21944787 (Version 1)
Quarter: 2023Q1

REPORT INFORMATION
  Report Type: Spontaneous
  Country: US (occurrence: None)
  Receive Date: 20230201
  Receipt Date: 20230201
  Transmission Date: 20230418
  Serious: No
  Sender: FDA-Public Use
  Company Number: None

PATIENT
  Age: 20 Year
  Sex: Female
  Weight: 56.25 kg

DRUGS (8)
  1. CEPHALEXIN [Suspect]
     Active Substance: CEPHALEXIN
     Indication: Cystitis
     Dates: start: 20230130, end: 20230201
  2. Zofran [Concomitant]
  3. CEPHALEXIN [Concomitant]
     Active Substance: CEPHALEXIN
  4. TYLENOL [Concomitant]
     Active Substance: ACETAMINOPHEN
  5. IBUPROFEN [Concomitant]
     Active Substance: IBUPROFEN
  6. women^s multi vitamins [Concomitant]
  7. magnesium citrate gummies [Concomitant]
  8. insoluble fiber vitamins [Concomitant]

REACTIONS (8)
  - Myalgia [None]
  - Arthralgia [None]
  - Pain in extremity [None]
  - Pain in extremity [None]
  - Hypoaesthesia [None]
  - Headache [None]
  - Nausea [None]
  - Confusional state [None]

NARRATIVE: CASE EVENT DATE: 20230130
